FAERS Safety Report 9885880 (Version 2)
Quarter: 2014Q3

REPORT INFORMATION
  Report Type: Spontaneous
  Country: US (occurrence: US)
  Receive Date: 20140210
  Receipt Date: 20140807
  Transmission Date: 20150326
  Serious: No
  Sender: FDA-Public Use
  Company Number: US-009507513-1402USA004214

PATIENT
  Sex: Female
  Weight: 95.4 kg

DRUGS (1)
  1. NUVARING [Suspect]
     Active Substance: ETHINYL ESTRADIOL\ETONOGESTREL
     Indication: PRODUCT USED FOR UNKNOWN INDICATION
     Route: 067

REACTIONS (4)
  - Peripheral embolism [Unknown]
  - Deep vein thrombosis [Recovering/Resolving]
  - Nerve compression [Unknown]
  - Thromboangiitis obliterans [Recovering/Resolving]

NARRATIVE: CASE EVENT DATE: 201309
